FAERS Safety Report 11137067 (Version 1)
Quarter: 2015Q2

REPORT INFORMATION
  Report Type: Report from Study
  Country: FR (occurrence: FR)
  Receive Date: 20150526
  Receipt Date: 20150526
  Transmission Date: 20150821
  Serious: Yes (Hospitalization, Other)
  Sender: FDA-Public Use
  Company Number: FR-GLAXOSMITHKLINE-FR2015GSK070822

PATIENT
  Age: 49 Year
  Sex: Male

DRUGS (8)
  1. OMEGA-3-ACID ETHYL ESTERS. [Suspect]
     Active Substance: OMEGA-3-ACID ETHYL ESTERS
     Indication: ISCHAEMIC HEART DISEASE PROPHYLAXIS
     Dosage: UNK
     Dates: start: 20081223, end: 20141217
  2. LASILIX [Concomitant]
     Active Substance: FUROSEMIDE
  3. INSPRA [Concomitant]
     Active Substance: EPLERENONE
  4. CARDENSIEL [Concomitant]
     Active Substance: BISOPROLOL FUMARATE
  5. KARDEGIC [Concomitant]
     Active Substance: ASPIRIN LYSINE
  6. NISIS [Concomitant]
     Active Substance: VALSARTAN
  7. SIMVASTATIN. [Concomitant]
     Active Substance: SIMVASTATIN
  8. PLAVIX [Concomitant]
     Active Substance: CLOPIDOGREL BISULFATE

REACTIONS (2)
  - Anaemia [Unknown]
  - Transfusion [Unknown]

NARRATIVE: CASE EVENT DATE: 20110428
